FAERS Safety Report 19055588 (Version 1)
Quarter: 2021Q1

REPORT INFORMATION
  Report Type: Spontaneous
  Country: BE (occurrence: BE)
  Receive Date: 20210324
  Receipt Date: 20210324
  Transmission Date: 20210420
  Serious: Yes (Hospitalization, Other)
  Sender: FDA-Public Use
  Company Number: BE-AMGEN-BELSP2021004942

PATIENT
  Age: 68 Year
  Sex: Female

DRUGS (9)
  1. BELSAR PLUS [Concomitant]
     Active Substance: HYDROCHLOROTHIAZIDE\OLMESARTAN MEDOXOMIL
     Dosage: 40/25 MILLIGRAM, QD
     Route: 048
  2. TRAZOLAN [Concomitant]
     Active Substance: TRAZODONE HYDROCHLORIDE
     Dosage: 100 MILLIGRAM, QD
     Route: 048
  3. PROLIA [Suspect]
     Active Substance: DENOSUMAB
     Indication: OSTEOPOROSIS POSTMENOPAUSAL
     Dosage: 60 MILLIGRAM, Q6MO
     Route: 058
     Dates: start: 20141202
  4. ATENOLOL EG [Concomitant]
     Active Substance: ATENOLOL
     Dosage: 100 MILLIGRAM, QD
     Route: 048
  5. LIPITOR [Concomitant]
     Active Substance: ATORVASTATIN CALCIUM
     Dosage: UNK
  6. ZOPICLONE [Concomitant]
     Active Substance: ZOPICLONE
     Dosage: 7.5 MILLIGRAM, QD
     Route: 048
  7. PANTOPRAZOLE TEVA [Concomitant]
     Active Substance: PANTOPRAZOLE SODIUM
     Dosage: 40 MILLIGRAM
     Route: 048
  8. AMLODIPINE EG [Concomitant]
     Active Substance: AMLODIPINE BESYLATE
     Dosage: 10 MILLIGRAM, QD
     Route: 048
  9. ATORVASTATIN [Concomitant]
     Active Substance: ATORVASTATIN
     Dosage: 20 MILLIGRAM, QD
     Route: 048

REACTIONS (5)
  - Asthenia [Unknown]
  - Osteonecrosis of jaw [Unknown]
  - Dental operation [Unknown]
  - Pain in extremity [Unknown]
  - Osteomyelitis [Unknown]

NARRATIVE: CASE EVENT DATE: 20150316
